FAERS Safety Report 7086853-X (Version None)
Quarter: 2010Q4

REPORT INFORMATION
  Report Type: 
  Country: None (occurrence: None)
  Receive Date: 20101105
  Receipt Date: 20101026
  Transmission Date: 20110411
  Serious: Yes (Death)
  Sender: FDA-Public Use
  Company Number: US-AMGEN-QUU443549

PATIENT

DRUGS (3)
  1. NPLATE [Suspect]
     Indication: THROMBOCYTOPENIA
     Dosage: .26 A?G/KG, UNK
     Route: 058
     Dates: start: 20100715, end: 20100722
  2. NPLATE [Suspect]
     Dosage: 65 A?G, QWK
     Route: 058
     Dates: start: 20100715, end: 20100724
  3. RITUXIMAB [Concomitant]
     Dosage: UNK UNK, UNK
     Dates: start: 20100618

REACTIONS (1)
  - MALIGNANT NEOPLASM PROGRESSION [None]
